FAERS Safety Report 4366260-0 (Version None)
Quarter: 2004Q2

REPORT INFORMATION
  Report Type: 
  Country: None (occurrence: None)
  Receive Date: 20040524
  Receipt Date: 20040202
  Transmission Date: 20050107
  Serious: No
  Sender: FDA-Public Use
  Company Number: SU-2004-002102

PATIENT
  Sex: Female

DRUGS (3)
  1. BENICAR [Suspect]
     Indication: HYPERTENSION
     Dosage: 10 MG QD PO
     Route: 048
     Dates: start: 20040127
  2. LEVOXYL [Concomitant]
  3. NORVASC [Concomitant]

REACTIONS (2)
  - BLOOD PRESSURE INCREASED [None]
  - DEPRESSION [None]
